FAERS Safety Report 6378539-1 (Version None)
Quarter: 2009Q3

REPORT INFORMATION
  Report Type: 
  Country: None (occurrence: None)
  Receive Date: 20090921
  Receipt Date: 20090908
  Transmission Date: 20100115
  Serious: Yes (Other)
  Sender: FDA-Public Use
  Company Number: CHPA2009US18712

PATIENT
  Age: 85 Year
  Sex: Female
  Weight: 57.1 kg

DRUGS (7)
  1. MAALOX ADV MAXIMUM STRENGTH ANTACID/ANTIGAS (NCH)(MAGNESIUM HYDROXIDE, [Suspect]
     Indication: DYSPEPSIA
     Dosage: CONSUMER TAKES 3 CAPFULS (SHE SAYS EQUAL 3 TEASPOONS) AT ONCE AT HS REGULARLY, ORAL
     Route: 048
     Dates: start: 20080101
  2. MAALOX ADV MAXIMUM STRENGTH ANTACID/ANTIGAS (NCH)(MAGNESIUM HYDROXIDE, [Suspect]
     Indication: FLATULENCE
     Dosage: CONSUMER TAKES 3 CAPFULS (SHE SAYS EQUAL 3 TEASPOONS) AT ONCE AT HS REGULARLY, ORAL
     Route: 048
     Dates: start: 20080101
  3. ZESTRIL [Concomitant]
  4. MAXZIDE [Concomitant]
  5. ATENOLOL [Concomitant]
  6. ASPIRIN [Concomitant]
  7. VITAMIN B12 [Concomitant]

REACTIONS (10)
  - BLOOD CREATININE INCREASED [None]
  - BLOOD UREA INCREASED [None]
  - CARDIO-RESPIRATORY ARREST [None]
  - DEHYDRATION [None]
  - DRUG HYPERSENSITIVITY [None]
  - FALL [None]
  - INGUINAL HERNIA REPAIR [None]
  - INTENTIONAL DRUG MISUSE [None]
  - UPPER LIMB FRACTURE [None]
  - WRONG TECHNIQUE IN DRUG USAGE PROCESS [None]
